FAERS Safety Report 6725740-0 (Version None)
Quarter: 2010Q2

REPORT INFORMATION
  Report Type: 
  Country: None (occurrence: None)
  Receive Date: 20100514
  Receipt Date: 20100503
  Transmission Date: 20101027
  Serious: Yes (Other)
  Sender: FDA-Public Use
  Company Number: FR-PFIZER INC-2010055723

PATIENT
  Age: 61 Year
  Sex: Female

DRUGS (1)
  1. XALATAN [Suspect]
     Dosage: UNK
     Route: 047
     Dates: start: 20091001

REACTIONS (6)
  - DIPLOPIA [None]
  - EYE BURNS [None]
  - EYELID OEDEMA [None]
  - FEELING ABNORMAL [None]
  - HYPOTENSION [None]
  - MYDRIASIS [None]
